FAERS Safety Report 4601728-0 (Version None)
Quarter: 2005Q1

REPORT INFORMATION
  Report Type: 
  Country: None (occurrence: None)
  Receive Date: 20050128
  Receipt Date: 20041112
  Transmission Date: 20050727
  Serious: No
  Sender: FDA-Public Use
  Company Number: WAES 0411USA02338

PATIENT
  Sex: Female

DRUGS (1)
  1. EMEND [Suspect]
     Dosage: PO
     Route: 048

REACTIONS (1)
  - HEADACHE [None]
